FAERS Safety Report 14111682 (Version 2)
Quarter: 2017Q4

REPORT INFORMATION
  Report Type: Spontaneous
  Country: FR (occurrence: FR)
  Receive Date: 20171020
  Receipt Date: 20171101
  Transmission Date: 20180321
  Serious: Yes (Hospitalization, Other)
  Sender: FDA-Public Use
  Company Number: FR-PFIZER INC-2017444203

PATIENT
  Age: 49 Year
  Sex: Female

DRUGS (33)
  1. CHOLURSO [Concomitant]
     Active Substance: URSODIOL
  2. LOXEN /00639802/ [Concomitant]
     Active Substance: NICARDIPINE HYDROCHLORIDE
     Dosage: UNK
  3. COVERSYL /00790703/ [Concomitant]
     Active Substance: PERINDOPRIL
     Dosage: UNK
  4. PARACETAMOL [Concomitant]
     Active Substance: ACETAMINOPHEN
     Dosage: UNK
  5. ENDOXAN /00021101/ [Concomitant]
     Active Substance: CYCLOPHOSPHAMIDE
     Dosage: UNK
  6. TIORFAN [Concomitant]
     Active Substance: RACECADOTRIL
     Dosage: UNK
  7. PIPERACILLINE / TAZOBACTAM MYLAN [Concomitant]
     Active Substance: PIPERACILLIN SODIUM\TAZOBACTAM SODIUM
     Dosage: UNK
  8. MORPHINE [Concomitant]
     Active Substance: MORPHINE
     Dosage: UNK
  9. EFFEXOR LP [Suspect]
     Active Substance: VENLAFAXINE HYDROCHLORIDE
     Indication: DEPRESSION
     Dosage: UNK
     Route: 048
     Dates: end: 20170807
  10. EFFEXOR LP [Interacting]
     Active Substance: VENLAFAXINE HYDROCHLORIDE
     Dosage: 75 MG
     Route: 048
     Dates: start: 20170811, end: 20170823
  11. CANCIDAS [Concomitant]
     Active Substance: CASPOFUNGIN ACETATE
     Dosage: UNK
  12. BUSULFAN. [Concomitant]
     Active Substance: BUSULFAN
     Dosage: UNK
  13. EFFEXOR LP [Interacting]
     Active Substance: VENLAFAXINE HYDROCHLORIDE
     Dosage: 75 MG
     Route: 048
     Dates: start: 20170828, end: 20170831
  14. NOXAFIL [Interacting]
     Active Substance: POSACONAZOLE
     Indication: ANTIFUNGAL PROPHYLAXIS
     Dosage: 300 MG, DAILY
     Route: 048
     Dates: start: 20170827, end: 20170904
  15. SPASFON /00765801/ [Concomitant]
     Active Substance: PHLOROGLUCINOL\1,3,5-TRIMETHOXYBENZENE
     Dosage: UNK
  16. POTASSIUM [Concomitant]
     Active Substance: POTASSIUM
     Indication: HYPOKALAEMIA
     Dosage: UNK
  17. ZARZIO [Concomitant]
     Active Substance: FILGRASTIM
     Dosage: UNK
  18. FUNGIZONE [Concomitant]
     Active Substance: AMPHOTERICIN B
     Dosage: UNK
  19. EFFEXOR LP [Interacting]
     Active Substance: VENLAFAXINE HYDROCHLORIDE
     Dosage: 37.5 MG
     Route: 048
     Dates: start: 20170823, end: 20170828
  20. MOVICOL [Concomitant]
     Active Substance: POLYETHYLENE GLYCOL 3350\POTASSIUM CHLORIDE\SODIUM BICARBONATE\SODIUM CHLORIDE
     Dosage: UNK
  21. HYDROCORTISONE. [Concomitant]
     Active Substance: HYDROCORTISONE
     Dosage: UNK
  22. ATARAX [Interacting]
     Active Substance: HYDROXYZINE HYDROCHLORIDE
     Indication: ANXIETY
     Dosage: 50 MG, SINGLE
     Route: 042
     Dates: start: 20170827, end: 20170827
  23. MAGNESIUM [Concomitant]
     Active Substance: MAGNESIUM
     Indication: HYPOMAGNESAEMIA
     Dosage: UNK
  24. AVLOCARDYL /00030002/ [Concomitant]
     Dosage: UNK
  25. ZOVIRAX [Concomitant]
     Active Substance: ACYCLOVIR
     Dosage: UNK
  26. CELLCEPT [Concomitant]
     Active Substance: MYCOPHENOLATE MOFETIL\MYCOPHENOLATE MOFETIL HYDROCHLORIDE
     Dosage: UNK
  27. SANDIMMUN [Interacting]
     Active Substance: CYCLOSPORINE
     Indication: PROPHYLAXIS AGAINST TRANSPLANT REJECTION
     Dosage: 100 MG, 2X/DAY
     Route: 042
     Dates: start: 20170827, end: 20170905
  28. PEVARYL /00418502/ [Concomitant]
     Dosage: UNK
  29. FUROSEMIDE. [Concomitant]
     Active Substance: FUROSEMIDE
     Dosage: UNK
  30. THIOTEPA. [Concomitant]
     Active Substance: THIOTEPA
     Dosage: UNK
  31. PANTOPRAZOLE [Concomitant]
     Active Substance: PANTOPRAZOLE
     Dosage: UNK
  32. RECTOGESIC /00003201/ [Concomitant]
     Active Substance: NITROGLYCERIN
     Dosage: UNK
  33. PLITICAN [Concomitant]
     Active Substance: ALIZAPRIDE HYDROCHLORIDE
     Dosage: UNK

REACTIONS (3)
  - Electrocardiogram QT prolonged [Recovering/Resolving]
  - Posterior reversible encephalopathy syndrome [Unknown]
  - Drug interaction [Unknown]

NARRATIVE: CASE EVENT DATE: 20170827
